FAERS Safety Report 4868962-6 (Version None)
Quarter: 2005Q4

REPORT INFORMATION
  Report Type: 
  Country: None (occurrence: None)
  Receive Date: 20051223
  Receipt Date: 20051213
  Transmission Date: 20060501
  Serious: Yes (Death, Hospitalization)
  Sender: FDA-Public Use
  Company Number: 2005147136

PATIENT
  Age: 27 Year
  Sex: Male
  Weight: 49 kg

DRUGS (27)
  1. UNASYN [Suspect]
     Indication: PNEUMONIA
     Dosage: 3 GRAM (1.5 GRAM, 2 IN 1 D), INTRAVENOUS
     Route: 042
     Dates: start: 20051016, end: 20051023
  2. DIPRIVAN [Suspect]
     Indication: SEDATION
     Dosage: 20 ML/HR, INTRAVENOUS
     Route: 042
     Dates: start: 20051016, end: 20051021
  3. SEVOFLURANE [Suspect]
     Indication: ASTHMA
     Dosage: 590 ML, INHALATION
     Route: 055
     Dates: start: 20051019, end: 20051021
  4. AMINOPHYLLIN [Suspect]
     Indication: ASTHMA
     Dosage: 37.0 MG/HR, INTRAVENOUS
     Route: 042
     Dates: start: 20051016, end: 20051023
  5. BOSMIN (EPINEPHRINE HYDROCHLORIDE) [Concomitant]
  6. MUSCULAX (VENCURONIUM BROMIDE) [Concomitant]
  7. FAMOTIDINE [Concomitant]
  8. SOLU-MEDROL [Concomitant]
  9. SOLU-CORTEF [Concomitant]
  10. MAGNESIUM SULFATE [Concomitant]
  11. GLUCOSE (GLUCOSE) [Concomitant]
  12. PROTERNOL-L (ISOPRENALINE HYDROCHLORIDE) [Concomitant]
  13. BETAMETHASONE [Concomitant]
  14. LEPETAN (BUPRENORPHINE HYDROCHLORIDE) [Concomitant]
  15. BRICANYL [Concomitant]
  16. HUMULIN R [Concomitant]
  17. XYLOCAINE [Concomitant]
  18. IMMUNE GLOBULIN INTRAVENOUS (HUMAN) [Concomitant]
  19. CALCIUM CHLORIDE (CALCIUM CHLORIDE ANHYDROUS) [Concomitant]
  20. FUTHAN (NAFAMOSTAT MESILATE) [Concomitant]
  21. NICARDIPINE HCL [Concomitant]
  22. GLYCEOL (FRUCTOSE, GLYCEROL) [Concomitant]
  23. PLASMA [Concomitant]
  24. PITRESSIN [Concomitant]
  25. CALCICOL (CALCIUM GLUCONATE) [Concomitant]
  26. PROTERNOL-L (ISOPRENALINE HYDROCHLORIDE) [Concomitant]
  27. DORMICUM FOR INJECTION (MIDAZOLAM HYDROCHLORIDE) [Concomitant]

REACTIONS (13)
  - ALANINE AMINOTRANSFERASE INCREASED [None]
  - ASPARTATE AMINOTRANSFERASE INCREASED [None]
  - ASTHMA [None]
  - BLOOD PRESSURE INCREASED [None]
  - BRAIN OEDEMA [None]
  - CONDITION AGGRAVATED [None]
  - HEPATIC FUNCTION ABNORMAL [None]
  - INTRACRANIAL VENOUS SINUS THROMBOSIS [None]
  - LIVER DISORDER [None]
  - MYDRIASIS [None]
  - PLATELET COUNT DECREASED [None]
  - PUPILLARY REFLEX IMPAIRED [None]
  - SUBARACHNOID HAEMORRHAGE [None]
